FAERS Safety Report 9807117 (Version 1)
Quarter: 2014Q1

REPORT INFORMATION
  Report Type: Spontaneous
  Country: US (occurrence: US)
  Receive Date: 20140110
  Receipt Date: 20140110
  Transmission Date: 20141002
  Serious: Yes (Death, Hospitalization)
  Sender: FDA-Public Use
  Company Number: US-ASTRAZENECA-2014SE01141

PATIENT
  Age: 31 Year
  Sex: Male

DRUGS (3)
  1. OMEPRAZOLE [Suspect]
     Dosage: INGESTED 30 TABLETS
     Route: 048
  2. ALPRAZOLAM [Suspect]
  3. COLCHICINE [Suspect]
     Dosage: 160 TABLETS INGESTED
     Route: 048

REACTIONS (7)
  - Toxicity to various agents [Fatal]
  - Completed suicide [Fatal]
  - Hepatic necrosis [Fatal]
  - Renal failure acute [Fatal]
  - Pericardial effusion [Fatal]
  - Pleural effusion [Fatal]
  - Multi-organ failure [Fatal]
